FAERS Safety Report 7193922-2 (Version None)
Quarter: 2010Q4

REPORT INFORMATION
  Report Type: 
  Country: None (occurrence: None)
  Receive Date: 20101223
  Receipt Date: 20100912
  Transmission Date: 20110411
  Serious: No
  Sender: FDA-Public Use
  Company Number: US-AMGEN-KDL437867

PATIENT

DRUGS (1)
  1. ENBREL [Suspect]
     Indication: RHEUMATOID ARTHRITIS
     Dosage: 50 MG, QWK
     Route: 058

REACTIONS (7)
  - BENIGN NEOPLASM [None]
  - CONTUSION [None]
  - INJECTION SITE HAEMATOMA [None]
  - RENAL CYST [None]
  - RHEUMATOID ARTHRITIS [None]
  - SINUSITIS [None]
  - THERAPEUTIC RESPONSE DECREASED [None]
